FAERS Safety Report 7550099-9 (Version None)
Quarter: 2011Q2

REPORT INFORMATION
  Report Type: 
  Country: None (occurrence: None)
  Receive Date: 20110615
  Receipt Date: 20110607
  Transmission Date: 20111010
  Serious: Yes (Hospitalization, Other)
  Sender: FDA-Public Use
  Company Number: US-US-EMD SERONO, INC.-7052581

PATIENT
  Sex: Female

DRUGS (1)
  1. REBIF [Suspect]
     Indication: PRODUCT USED FOR UNKNOWN INDICATION
     Route: 058
     Dates: start: 20101207

REACTIONS (7)
  - INJECTION SITE ERYTHEMA [None]
  - DEHYDRATION [None]
  - INJECTION SITE PAIN [None]
  - TREMOR [None]
  - PNEUMONIA [None]
  - HUNGER [None]
  - CHILLS [None]
